FAERS Safety Report 15630503 (Version 2)
Quarter: 2018Q4

REPORT INFORMATION
  Report Type: Spontaneous
  Country: FR (occurrence: FR)
  Receive Date: 20181119
  Receipt Date: 20181206
  Transmission Date: 20190205
  Serious: Yes (Other)
  Sender: FDA-Public Use
  Company Number: FR-BEH-2018096960

PATIENT
  Age: 70 Year
  Sex: Male

DRUGS (2)
  1. HUMAN IMMUNOGLOBULIN (NC) [Suspect]
     Active Substance: HUMAN IMMUNOGLOBULIN G
     Indication: LEWIS-SUMNER SYNDROME
     Dosage: 2000 MG/KG, QMT
     Route: 042
  2. HUMAN IMMUNOGLOBULIN (NC) [Concomitant]
     Active Substance: HUMAN IMMUNOGLOBULIN G
     Indication: LEWIS-SUMNER SYNDROME
     Dosage: 1100 MG/KG, QMT (70 ML TWICE PER WEEK)
     Route: 058

REACTIONS (1)
  - Lewis-Sumner syndrome [Unknown]
